FAERS Safety Report 14794113 (Version 1)
Quarter: 2018Q2

REPORT INFORMATION
  Report Type: Report from Study
  Country: ES (occurrence: ES)
  Receive Date: 20180423
  Receipt Date: 20180423
  Transmission Date: 20180711
  Serious: Yes (Hospitalization)
  Sender: FDA-Public Use
  Company Number: ES-TEVA-2018-ES-885174

PATIENT
  Age: 85 Year
  Sex: Female

DRUGS (4)
  1. NOVONORM 0,5 MG, TABLETS, 90 TABLETS [Concomitant]
     Indication: TYPE 2 DIABETES MELLITUS
     Route: 048
     Dates: start: 201408, end: 20160908
  2. VALSARTAN (7423A) [Suspect]
     Active Substance: VALSARTAN
     Indication: HYPERTENSION
     Route: 048
     Dates: start: 201205, end: 20160908
  3. METFORMIN HYDROCHLORIDE (1359CH) [Concomitant]
     Indication: TYPE 2 DIABETES MELLITUS
     Route: 048
     Dates: end: 20160908
  4. LINAGLIPTIN (8509A) [Concomitant]
     Indication: TYPE 2 DIABETES MELLITUS
     Route: 048
     Dates: start: 20160719, end: 20160908

REACTIONS (1)
  - Acute kidney injury [Recovered/Resolved]

NARRATIVE: CASE EVENT DATE: 20160906
